FAERS Safety Report 21083502 (Version 1)
Quarter: 2022Q3

REPORT INFORMATION
  Report Type: Spontaneous
  Country: US (occurrence: None)
  Receive Date: 20220714
  Receipt Date: 20220714
  Transmission Date: 20221027
  Serious: Yes (Hospitalization)
  Sender: FDA-Public Use
  Company Number: None

PATIENT
  Age: 63 Year
  Sex: Male
  Weight: 87 kg

DRUGS (1)
  1. SODIUM FERRIC GLUCONATE COMPLEX [Suspect]
     Active Substance: SODIUM FERRIC GLUCONATE COMPLEX
     Indication: Anaemia
     Dosage: FREQUENCY : WEEKLY;?
     Route: 042
     Dates: start: 20220616, end: 20220616

REACTIONS (10)
  - Infusion related reaction [None]
  - Peripheral swelling [None]
  - Back pain [None]
  - Abdominal pain upper [None]
  - Blood pressure increased [None]
  - Urticaria [None]
  - Rash [None]
  - Urticaria [None]
  - Pruritus [None]
  - Peripheral swelling [None]

NARRATIVE: CASE EVENT DATE: 20220616
